FAERS Safety Report 4372616-2 (Version None)
Quarter: 2004Q2

REPORT INFORMATION
  Report Type: 
  Country: None (occurrence: None)
  Receive Date: 20040526
  Receipt Date: 20040512
  Transmission Date: 20050107
  Serious: Yes (Hospitalization)
  Sender: FDA-Public Use
  Company Number: US-2004-025540

PATIENT
  Age: 74 Year
  Sex: Male
  Weight: 78.7 kg

DRUGS (2)
  1. FLUDARA [Suspect]
     Indication: CHRONIC LYMPHOCYTIC LEUKAEMIA
     Dosage: 50 MG DAILY (DAYS 1-5) Q28 DAYS, INTRAVENOUS
     Route: 042
     Dates: start: 20040225
  2. CAMPATH [Suspect]
     Indication: CHRONIC LYMPHOCYTIC LEUKAEMIA
     Dosage: 30 MG DAILY (DAYS 1-5) Q28 DAYS, SUBCUTANEOUS
     Route: 058
     Dates: start: 20040225

REACTIONS (1)
  - SYNCOPE [None]
